FAERS Safety Report 7260179-3 (Version None)
Quarter: 2011Q1

REPORT INFORMATION
  Report Type: 
  Country: None (occurrence: None)
  Receive Date: 20110130
  Receipt Date: 20101015
  Transmission Date: 20110831
  Serious: Yes (Other)
  Sender: FDA-Public Use
  Company Number: US-ABBOTT-10P-163-0679260-00

PATIENT
  Sex: Male
  Weight: 87.622 kg

DRUGS (20)
  1. HUMIRA [Suspect]
     Dates: start: 20100906, end: 20100906
  2. LORATADINE [Concomitant]
     Indication: SEASONAL ALLERGY
  3. FISH OIL [Concomitant]
     Indication: SUPPLEMENTATION THERAPY
  4. GLUCOSAMINE + CHONDROITIN [Concomitant]
     Indication: SUPPLEMENTATION THERAPY
  5. MERCAPTOPURINE [Concomitant]
     Indication: CROHN'S DISEASE
     Dates: start: 20100605, end: 20100928
  6. SIMVASTATIN [Concomitant]
     Indication: BLOOD CHOLESTEROL INCREASED
  7. IRON [Concomitant]
     Indication: MINERAL SUPPLEMENTATION
  8. VIAGRA [Concomitant]
     Indication: PRODUCT USED FOR UNKNOWN INDICATION
  9. GEMFIBROZIL [Concomitant]
     Indication: BLOOD CHOLESTEROL INCREASED
  10. ZOPIDEM [Concomitant]
     Indication: PRODUCT USED FOR UNKNOWN INDICATION
  11. FIBER [Concomitant]
     Indication: SUPPLEMENTATION THERAPY
  12. FLUTICASONE PROPIONATE [Concomitant]
     Indication: HYPERSENSITIVITY
  13. PENTAZA [Concomitant]
     Indication: CROHN'S DISEASE
  14. HUMIRA [Suspect]
     Indication: CROHN'S DISEASE
     Dates: start: 20100920, end: 20100928
  15. HUMIRA [Suspect]
     Dates: start: 20100823, end: 20100823
  16. ENTECORT [Concomitant]
     Indication: CROHN'S DISEASE
  17. OMEPRAZOLE [Concomitant]
     Indication: GASTROOESOPHAGEAL REFLUX DISEASE
  18. ASCORBIC ACID [Concomitant]
     Indication: VITAMIN SUPPLEMENTATION
  19. MULTIPLE VITAMINS [Concomitant]
     Indication: VITAMIN SUPPLEMENTATION
  20. ASPIRIN [Concomitant]
     Indication: PRODUCT USED FOR UNKNOWN INDICATION

REACTIONS (2)
  - PANCYTOPENIA [None]
  - BLOOD TRIGLYCERIDES INCREASED [None]
